FAERS Safety Report 4606747-6 (Version None)
Quarter: 2005Q1

REPORT INFORMATION
  Report Type: 
  Country: None (occurrence: None)
  Receive Date: 20050116
  Receipt Date: 20041206
  Transmission Date: 20050727
  Serious: Yes (Other)
  Sender: FDA-Public Use
  Company Number: HQWYE766306DEC04

PATIENT
  Age: 40 Year
  Sex: Male
  Weight: 95.34 kg

DRUGS (3)
  1. EFFEXOR [Suspect]
  2. ADDERALL 10 [Suspect]
  3. SUBOXONE [Suspect]
     Indication: PAIN MANAGEMENT
     Dosage: 8 MG 1X PER 1 DAY, SUBLINGUAL
     Route: 060
     Dates: start: 20041105

REACTIONS (2)
  - BLOOD PRESSURE INCREASED [None]
  - TACHYCARDIA [None]
